FAERS Safety Report 22089369 (Version 1)
Quarter: 2023Q1

REPORT INFORMATION
  Report Type: Spontaneous
  Country: US (occurrence: None)
  Receive Date: 20230312
  Receipt Date: 20230312
  Transmission Date: 20230418
  Serious: Yes (Other)
  Sender: FDA-Public Use
  Company Number: None

PATIENT
  Age: 57 Year
  Sex: Male
  Weight: 58.5 kg

DRUGS (3)
  1. BRIMONIDINE TARTRATE [Suspect]
     Active Substance: BRIMONIDINE TARTRATE
     Indication: Glaucoma
     Dosage: OTHER QUANTITY : 5 5ML;?FREQUENCY : 3 TIMES A DAY;?
     Route: 058
  2. Kone [Concomitant]
  3. VITAMINS [Concomitant]
     Active Substance: VITAMINS

REACTIONS (6)
  - Vision blurred [None]
  - Vision blurred [None]
  - Ocular hyperaemia [None]
  - Feeling abnormal [None]
  - Intraocular pressure increased [None]
  - Headache [None]

NARRATIVE: CASE EVENT DATE: 20230220
